FAERS Safety Report 6768595-0 (Version None)
Quarter: 2010Q2

REPORT INFORMATION
  Report Type: 
  Country: None (occurrence: None)
  Receive Date: 20100614
  Receipt Date: 20100601
  Transmission Date: 20101027
  Serious: Yes (Other)
  Sender: FDA-Public Use
  Company Number: JP-PFIZER INC-2010068222

PATIENT
  Age: 72 Year
  Sex: Female

DRUGS (3)
  1. ZOLOFT [Suspect]
     Dosage: 25 MG, 1X/DAY
     Route: 048
     Dates: start: 20100506, end: 20100527
  2. DESYREL [Suspect]
     Dosage: 25 MG, 1X/DAY
     Route: 048
     Dates: start: 20100506, end: 20100527
  3. TIZANIDINE HCL [Concomitant]
     Indication: FATIGUE

REACTIONS (5)
  - ACTIVITIES OF DAILY LIVING IMPAIRED [None]
  - DIZZINESS [None]
  - DIZZINESS POSTURAL [None]
  - FATIGUE [None]
  - MYALGIA [None]
